FAERS Safety Report 24212826 (Version 3)
Quarter: 2024Q3

REPORT INFORMATION
  Report Type: Report from Study
  Country: US (occurrence: US)
  Receive Date: 20240815
  Receipt Date: 20240923
  Transmission Date: 20241017
  Serious: Yes (Other)
  Sender: AMGEN
  Company Number: US-AMGEN-USASL2024145402

PATIENT
  Sex: Female

DRUGS (2)
  1. TEPEZZA [Suspect]
     Active Substance: TEPROTUMUMAB-TRBW
     Indication: Toxic goitre
     Dosage: 10 MILLIGRAM/KILOGRAM, Q3WK FIRST INFUSION (20MG/KG DOSES 2-8 EVERY 3 WEEKS)
     Route: 042
     Dates: start: 20240719
  2. TEPEZZA [Suspect]
     Active Substance: TEPROTUMUMAB-TRBW
     Dosage: 20 MILLIGRAM/KILOGRAM, Q3WK (UNKNOWN INFUSION)
     Route: 042
     Dates: start: 20240830

REACTIONS (5)
  - Deafness unilateral [Unknown]
  - Ear discomfort [Unknown]
  - Fatigue [Unknown]
  - Tinnitus [Unknown]
  - Eye pain [Unknown]

NARRATIVE: CASE EVENT DATE: 20240101
